FAERS Safety Report 25570014 (Version 1)
Quarter: 2025Q3

REPORT INFORMATION
  Report Type: Report from Study
  Country: US (occurrence: US)
  Receive Date: 20250717
  Receipt Date: 20250717
  Transmission Date: 20251020
  Serious: Yes (Other)
  Sender: ALEXION PHARMACEUTICALS
  Company Number: US-ASTRAZENECA-202507USA010200US

PATIENT
  Age: 25 Year
  Sex: Female

DRUGS (1)
  1. STRENSIQ [Suspect]
     Active Substance: ASFOTASE ALFA
     Indication: Phosphorus metabolism disorder
     Dosage: 80 MILLIGRAM, TIW
     Route: 065

REACTIONS (32)
  - Deafness [Unknown]
  - Abdominal pain [Unknown]
  - Hypertransaminasaemia [Unknown]
  - Iron overload [Unknown]
  - Malaise [Unknown]
  - Fatigue [Unknown]
  - Vision blurred [Unknown]
  - Temperature intolerance [Unknown]
  - Diarrhoea [Unknown]
  - Dyspepsia [Unknown]
  - Nausea [Unknown]
  - Rash [Unknown]
  - Asthenia [Unknown]
  - Insomnia [Unknown]
  - Blood glucose increased [Unknown]
  - Aspartate aminotransferase increased [Unknown]
  - Dizziness [Unknown]
  - Malaise [Unknown]
  - Ear pain [Unknown]
  - Sinus pain [Unknown]
  - Tinnitus [Unknown]
  - Ocular hyperaemia [Unknown]
  - Palpitations [Unknown]
  - Paraesthesia [Unknown]
  - Headache [Unknown]
  - Mean cell volume increased [Unknown]
  - Alanine aminotransferase increased [Unknown]
  - Haematocrit increased [Unknown]
  - Mean cell volume increased [Unknown]
  - Lymphocyte count increased [Unknown]
  - Monocyte count increased [Unknown]
  - Carbon dioxide increased [Unknown]

NARRATIVE: CASE EVENT DATE: 20250304
